FAERS Safety Report 7297081-7 (Version None)
Quarter: 2011Q1

REPORT INFORMATION
  Report Type: 
  Country: None (occurrence: None)
  Receive Date: 20110216
  Receipt Date: 20110207
  Transmission Date: 20110831
  Serious: Yes (Hospitalization)
  Sender: FDA-Public Use
  Company Number: US-ASTRAZENECA-2011SE06833

PATIENT
  Age: 57 Year
  Sex: Female
  Weight: 77.1 kg

DRUGS (13)
  1. SEROQUEL [Suspect]
     Indication: BIPOLAR DISORDER
     Route: 048
     Dates: start: 20080101
  2. ASPIRIN [Concomitant]
  3. MULTIVITAMIN [Concomitant]
  4. DRAMAMINE [Concomitant]
  5. TRAZODONE HCL [Concomitant]
  6. LAMICTAL [Concomitant]
     Indication: DEPRESSION
  7. CALCIUM [Concomitant]
  8. LISINOPRIL [Concomitant]
  9. ATENOLOL [Concomitant]
  10. FISH OIL [Concomitant]
  11. NEXIUM [Suspect]
     Indication: HIATUS HERNIA
     Route: 048
     Dates: start: 20020101
  12. NEURONTIN [Concomitant]
  13. BUSPAR [Concomitant]

REACTIONS (3)
  - WEIGHT INCREASED [None]
  - CHRONIC OBSTRUCTIVE PULMONARY DISEASE [None]
  - PNEUMONIA [None]
